FAERS Safety Report 9440816 (Version 1)
Quarter: 2013Q3

REPORT INFORMATION
  Report Type: Spontaneous
  Country: BR (occurrence: BR)
  Receive Date: 20130805
  Receipt Date: 20130805
  Transmission Date: 20140515
  Serious: Yes (Other)
  Sender: FDA-Public Use
  Company Number: BR-SANOFI-AVENTIS-2012SA088959

PATIENT
  Age: 36 Year
  Sex: Female
  Weight: 59 kg

DRUGS (3)
  1. CLEXANE [Suspect]
     Indication: ANTIPHOSPHOLIPID SYNDROME
     Dosage: STRENGTH: 60 MG?STRAT DATE: 14 WEEKS AGO
     Route: 042
     Dates: start: 2012, end: 20130509
  2. CLEXANE [Suspect]
     Indication: ANTIPHOSPHOLIPID SYNDROME
     Route: 042
     Dates: start: 20130511, end: 20130611
  3. SYNTHROID [Concomitant]
     Indication: HYPOTHYROIDISM
     Route: 048

REACTIONS (3)
  - Amniotic fluid volume decreased [Recovered/Resolved]
  - Hyperglycaemia [Recovered/Resolved]
  - Exposure during pregnancy [Unknown]
